FAERS Safety Report 9685871 (Version 1)
Quarter: 2013Q4

REPORT INFORMATION
  Report Type: Spontaneous
  Country: US (occurrence: US)
  Receive Date: 20131113
  Receipt Date: 20131113
  Transmission Date: 20140711
  Serious: No
  Sender: FDA-Public Use
  Company Number: US-009507513-1311USA002348

PATIENT
  Sex: Female

DRUGS (3)
  1. AZASITE [Suspect]
     Indication: GLAUCOMA
     Dosage: 2 GTT, BID
     Route: 047
     Dates: start: 2012, end: 20131104
  2. TIMOLOL [Concomitant]
     Dosage: UNK, QD
     Route: 047
  3. LUMIGAN [Concomitant]
     Dosage: UNK, QD
     Route: 047

REACTIONS (1)
  - Ocular hyperaemia [Not Recovered/Not Resolved]
